FAERS Safety Report 5254148-2 (Version None)
Quarter: 2007Q1

REPORT INFORMATION
  Report Type: 
  Country: None (occurrence: None)
  Receive Date: 20070302
  Receipt Date: 20070219
  Transmission Date: 20070707
  Serious: Yes (Hospitalization)
  Sender: FDA-Public Use
  Company Number: IT-ROCHE-483375

PATIENT
  Age: 70 Year
  Sex: Male

DRUGS (2)
  1. XELODA [Suspect]
     Dosage: STRENGTH REPORTED AS MG.
     Route: 048
     Dates: start: 20060830, end: 20061025
  2. ELOXATIN [Suspect]
     Dosage: FORM REPORTED AS VIAL. STRENGTH REPORTED AS MG.  DOSAGE REGIMEN REPORTED AS 180 MG CICLE.
     Route: 042
     Dates: start: 20060829, end: 20061010

REACTIONS (3)
  - CAUDA EQUINA SYNDROME [None]
  - HEMIPARESIS [None]
  - NEUROPATHY PERIPHERAL [None]
